FAERS Safety Report 25013109 (Version 1)
Quarter: 2025Q1

REPORT INFORMATION
  Report Type: Spontaneous
  Country: US (occurrence: None)
  Receive Date: 20250226
  Receipt Date: 20250226
  Transmission Date: 20250409
  Serious: Yes (Disabling)
  Sender: FDA-CTU
  Company Number: None

PATIENT
  Sex: Female

DRUGS (1)
  1. CELEXA [Suspect]
     Active Substance: CITALOPRAM HYDROBROMIDE
     Indication: Anxiety
     Route: 048

REACTIONS (6)
  - Genital hypoaesthesia [None]
  - Female sexual dysfunction [None]
  - Vulvovaginal dryness [None]
  - Mental disorder [None]
  - Social problem [None]
  - Economic problem [None]
